FAERS Safety Report 5211457-0 (Version None)
Quarter: 2007Q1

REPORT INFORMATION
  Report Type: 
  Country: None (occurrence: None)
  Receive Date: 20070112
  Receipt Date: 20070103
  Transmission Date: 20070707
  Serious: Yes (Hospitalization)
  Sender: FDA-Public Use
  Company Number: HQWYE452104JAN07

PATIENT
  Sex: Female

DRUGS (10)
  1. EFFEXOR XR [Suspect]
     Indication: DEPRESSION
     Dosage: 400 MG 1X PER 1 DAY, ORAL; SEE IMAGE
     Route: 048
     Dates: start: 20050101, end: 20061201
  2. EFFEXOR XR [Suspect]
     Indication: SUICIDAL IDEATION
     Dosage: 400 MG 1X PER 1 DAY, ORAL; SEE IMAGE
     Route: 048
     Dates: start: 20050101, end: 20061201
  3. EFFEXOR XR [Suspect]
     Indication: DEPRESSION
     Dosage: 400 MG 1X PER 1 DAY, ORAL; SEE IMAGE
     Route: 048
     Dates: start: 20061201, end: 20061201
  4. EFFEXOR XR [Suspect]
     Indication: SUICIDAL IDEATION
     Dosage: 400 MG 1X PER 1 DAY, ORAL; SEE IMAGE
     Route: 048
     Dates: start: 20061201, end: 20061201
  5. EFFEXOR XR [Suspect]
     Indication: DEPRESSION
     Dosage: 400 MG 1X PER 1 DAY, ORAL; SEE IMAGE
     Route: 048
     Dates: start: 20061201
  6. EFFEXOR XR [Suspect]
     Indication: SUICIDAL IDEATION
     Dosage: 400 MG 1X PER 1 DAY, ORAL; SEE IMAGE
     Route: 048
     Dates: start: 20061201
  7. NORTRIPTYLINE HCL [Suspect]
     Indication: DEPRESSION
     Dosage: ORAL
     Route: 048
     Dates: start: 20050101, end: 20061201
  8. NORTRIPTYLINE HCL [Suspect]
     Indication: SUICIDAL IDEATION
     Dosage: ORAL
     Route: 048
     Dates: start: 20050101, end: 20061201
  9. SYNTHROID [Concomitant]
  10. CYTOMEL [Concomitant]

REACTIONS (15)
  - DEPRESSION [None]
  - DIZZINESS [None]
  - DRUG EFFECT DECREASED [None]
  - DRUG WITHDRAWAL SYNDROME [None]
  - HEADACHE [None]
  - LIVER FUNCTION TEST ABNORMAL [None]
  - LIVER TENDERNESS [None]
  - MUSCULOSKELETAL STIFFNESS [None]
  - NECK PAIN [None]
  - NUCHAL RIGIDITY [None]
  - PARAESTHESIA [None]
  - PLEURAL EFFUSION [None]
  - PNEUMONIA [None]
  - SOMNOLENCE [None]
  - TACHYCARDIA [None]
